FAERS Safety Report 5036152-2 (Version None)
Quarter: 2006Q2

REPORT INFORMATION
  Report Type: 
  Country: None (occurrence: None)
  Receive Date: 20060627
  Receipt Date: 20060616
  Transmission Date: 20061013
  Serious: Yes (Death)
  Sender: FDA-Public Use
  Company Number: GB-MERCK-0606GBR00073

PATIENT
  Sex: Male

DRUGS (22)
  1. DECADRON [Suspect]
     Route: 065
  2. ASPIRIN [Concomitant]
     Route: 065
  3. ATORVASTATIN CALCIUM [Concomitant]
     Route: 065
  4. BECLOMETHASONE DIPROPIONATE [Concomitant]
     Route: 055
  5. DILTIAZEM HYDROCHLORIDE [Concomitant]
     Route: 065
  6. DOTHIEPIN HYDROCHLORIDE [Concomitant]
     Route: 065
  7. AMILORIDE HYDROCHLORIDE AND FUROSEMIDE [Concomitant]
     Route: 065
  8. FUROSEMIDE [Concomitant]
     Route: 065
  9. ALUMINUM HYDROXIDE AND MAGNESIUM TRISILICATE [Concomitant]
     Route: 065
  10. LACTULOSE [Concomitant]
     Route: 065
  11. LANSOPRAZOLE [Concomitant]
     Route: 065
  12. METOCLOPRAMIDE [Concomitant]
     Route: 065
  13. NITROGLYCERIN [Concomitant]
     Route: 065
  14. LEVOMEPROMAZINE [Concomitant]
     Route: 065
  15. OXYCODONE [Concomitant]
     Route: 065
  16. OXYGEN [Concomitant]
     Route: 055
  17. ALBUTEROL [Concomitant]
     Route: 055
  18. SPIRONOLACTONE [Concomitant]
     Route: 065
  19. BUDESONIDE AND FORMOTEROL FUMARATE [Concomitant]
     Route: 055
  20. ALBUTEROL SULFATE AND IPRATROPIUM BROMIDE [Concomitant]
     Indication: CHRONIC OBSTRUCTIVE PULMONARY DISEASE
     Route: 055
     Dates: start: 20030617, end: 20040513
  21. TIOTROPIUM BROMIDE [Concomitant]
     Indication: CHRONIC OBSTRUCTIVE PULMONARY DISEASE
     Route: 055
     Dates: start: 20030617, end: 20040701
  22. TEMAZEPAM [Concomitant]
     Route: 065

REACTIONS (1)
  - MESOTHELIOMA [None]
